FAERS Safety Report 6264300-5 (Version None)
Quarter: 2009Q3

REPORT INFORMATION
  Report Type: 
  Country: None (occurrence: None)
  Receive Date: 20090710
  Receipt Date: 20090630
  Transmission Date: 20100115
  Serious: Yes (Hospitalization)
  Sender: FDA-Public Use
  Company Number: A0744501A

PATIENT
  Age: 74 Year
  Sex: Female
  Weight: 72.7 kg

DRUGS (1)
  1. AVANDIA [Suspect]
     Dosage: 2MG TWICE PER DAY
     Route: 048
     Dates: start: 20050824, end: 20070503

REACTIONS (3)
  - CEREBROVASCULAR ACCIDENT [None]
  - DIASTOLIC DYSFUNCTION [None]
  - HEMIPARESIS [None]
